FAERS Safety Report 8173090-0 (Version None)
Quarter: 2012Q1

REPORT INFORMATION
  Report Type: 
  Country: None (occurrence: None)
  Receive Date: 20120104
  Receipt Date: 20111104
  Transmission Date: 20120608
  Serious: No
  Sender: FDA-Public Use
  Company Number: 2011HGS-002746

PATIENT
  Age: 50 Year
  Sex: Female
  Weight: 113.3993 kg

DRUGS (18)
  1. XOPENEX (LEVOSALBUTAMOL) (LEVOSALBUTAMOL) [Concomitant]
  2. PLAQUENIL (HYDROXYCHLOROQUINE SULFATE) (HYDROXYCHLOROQUINE SULFATE) [Concomitant]
  3. METFORMIN HCL [Concomitant]
  4. DHEA (PRASTERONE) (PRASTERONE) [Concomitant]
  5. ULTRAM (TRAMADOL HYDROCHLORIDE) (TRAMADOL HYDROCHLORIDE) [Concomitant]
  6. BENLYSTA [Suspect]
     Indication: SYSTEMIC LUPUS ERYTHEMATOSUS
     Dosage: 1100 MG, 1 IN 28 D, INTRAVENOUS DRIP
     Route: 041
     Dates: start: 20110712
  7. ALVESCO (CORTICOSTEROIDS) (CICLESONIDE) [Concomitant]
  8. VITAMIN D (ERGOCALCIFEROL) (ERGOCALCIFEROL) [Concomitant]
  9. BACLOFEN [Concomitant]
  10. TYLENOL (PARACETAMOL) (PARACETAMOL) [Concomitant]
  11. FOLIC ACID [Concomitant]
  12. ASPIRIN [Concomitant]
  13. FLONASE (FLUTICASONE PROPIONATE) (FLUTICASONE PROPIONATE) [Concomitant]
  14. NEXIUM [Concomitant]
  15. METHOTREXATE [Concomitant]
  16. NORVASC [Concomitant]
  17. NEURONTIN [Concomitant]
  18. ZYRTEC [Concomitant]

REACTIONS (6)
  - DIZZINESS [None]
  - OROPHARYNGEAL PAIN [None]
  - NAUSEA [None]
  - DEPRESSION [None]
  - DYSPNOEA [None]
  - URINARY TRACT INFECTION [None]
